FAERS Safety Report 7996120-5 (Version None)
Quarter: 2011Q4

REPORT INFORMATION
  Report Type: 
  Country: None (occurrence: None)
  Receive Date: 20111220
  Receipt Date: 20111213
  Transmission Date: 20120403
  Serious: Yes (Hospitalization, Other)
  Sender: FDA-Public Use
  Company Number: PHHO2009US06760

PATIENT
  Sex: Female
  Weight: 69.3 kg

DRUGS (4)
  1. AFINITOR [Suspect]
     Dosage: 2.5MG/DAY (DOSE REDUCED)
     Route: 048
     Dates: end: 20090524
  2. AFINITOR [Suspect]
     Indication: NEOPLASM
     Dosage: 5MG/DAY
     Route: 048
     Dates: start: 20090430
  3. LAPATINIB [Suspect]
     Indication: NEOPLASM
     Dosage: 1250MG/DAY
     Route: 048
     Dates: start: 20090430
  4. LAPATINIB [Suspect]
     Dosage: 1000MG/DAY (DOSE REDUCED)
     Route: 048
     Dates: end: 20090524

REACTIONS (14)
  - ANAEMIA [None]
  - BLOOD CHOLESTEROL INCREASED [None]
  - VOMITING [None]
  - HYPOALBUMINAEMIA [None]
  - FATIGUE [None]
  - HYPOPHAGIA [None]
  - ABDOMINAL PAIN [None]
  - DELIRIUM [None]
  - HYPOPHOSPHATAEMIA [None]
  - DIARRHOEA [None]
  - HYPERTRIGLYCERIDAEMIA [None]
  - DEHYDRATION [None]
  - NAUSEA [None]
  - PYREXIA [None]
